FAERS Safety Report 9840499 (Version 1)
Quarter: 2013Q4

REPORT INFORMATION
  Report Type: Spontaneous
  Country: US (occurrence: None)
  Receive Date: 20131211
  Receipt Date: 20131211
  Transmission Date: 20140711
  Serious: No
  Sender: FDA-Public Use
  Company Number: ALL1-2011-03912

PATIENT
  Age: 24 Year
  Sex: Female

DRUGS (2)
  1. FIRAZYR [Suspect]
     Indication: HEREDITARY ANGIOEDEMA
     Route: 058
     Dates: end: 201110
  2. KALBITOR [Concomitant]

REACTIONS (5)
  - Pain [None]
  - Injection site pain [None]
  - Nausea [None]
  - Injection site reaction [None]
  - No therapeutic response [None]
